FAERS Safety Report 15849233 (Version 1)
Quarter: 2019Q1

REPORT INFORMATION
  Report Type: Spontaneous
  Country: JP (occurrence: JP)
  Receive Date: 20190121
  Receipt Date: 20190121
  Transmission Date: 20190417
  Serious: Yes (Hospitalization, Other)
  Sender: FDA-Public Use
  Company Number: JP-SA-2019SA010867

PATIENT
  Age: 62 Year
  Sex: Male
  Weight: 57.5 kg

DRUGS (7)
  1. INSULIN GLARGINE [Suspect]
     Active Substance: INSULIN GLARGINE
     Dosage: GRADUAL INCREASE IN THE INSULIN DOSAGE
  2. INSULIN GLARGINE [Suspect]
     Active Substance: INSULIN GLARGINE
     Dosage: 40 U, QD
     Dates: start: 201212
  3. INSULIN GLARGINE [Suspect]
     Active Substance: INSULIN GLARGINE
     Dosage: 16 U
  4. INSULIN LISPRO [Suspect]
     Active Substance: INSULIN LISPRO
     Dosage: 39 U, QD
     Dates: start: 201212
  5. INSULIN LISPRO [Suspect]
     Active Substance: INSULIN LISPRO
     Indication: TYPE 2 DIABETES MELLITUS
     Dosage: GRADUAL INCREASE IN THE INSULIN DOSAGE
  6. INSULIN LISPRO [Suspect]
     Active Substance: INSULIN LISPRO
     Dosage: 22 U
  7. INSULIN GLARGINE [Suspect]
     Active Substance: INSULIN GLARGINE
     Indication: TYPE 2 DIABETES MELLITUS
     Dosage: UNK UNK, QID
     Route: 058
     Dates: start: 1994

REACTIONS (8)
  - Glycosylated haemoglobin increased [Recovering/Resolving]
  - Pain [Unknown]
  - Mass excision [Unknown]
  - Hypoglycaemia [Unknown]
  - Tenderness [Unknown]
  - Blood glucose increased [Unknown]
  - Condition aggravated [Unknown]
  - Amyloidosis [Unknown]

NARRATIVE: CASE EVENT DATE: 201212
